FAERS Safety Report 23868345 (Version 2)
Quarter: 2024Q3

REPORT INFORMATION
  Report Type: Spontaneous
  Country: US (occurrence: US)
  Receive Date: 20240517
  Receipt Date: 20240723
  Transmission Date: 20241017
  Serious: No
  Sender: STEMLINE THERAPEUTICS
  Company Number: US-Stemline Therapeutics, Inc.-2024ST001693

PATIENT
  Age: 69 Year
  Sex: Female

DRUGS (2)
  1. ORSERDU [Suspect]
     Active Substance: ELACESTRANT
     Indication: Product used for unknown indication
     Route: 048
     Dates: start: 20240220
  2. ORSERDU [Suspect]
     Active Substance: ELACESTRANT
     Dosage: 345MG ONCE DAILY
     Route: 048
     Dates: start: 20240219

REACTIONS (5)
  - Irritable bowel syndrome [Unknown]
  - Constipation [Unknown]
  - Nausea [Unknown]
  - Diarrhoea [Unknown]
  - Neoplasm progression [Unknown]
